FAERS Safety Report 7329305-1 (Version None)
Quarter: 2011Q1

REPORT INFORMATION
  Report Type: 
  Country: None (occurrence: None)
  Receive Date: 20110303
  Receipt Date: 20110222
  Transmission Date: 20110831
  Serious: Yes (Life-Threatening)
  Sender: FDA-Public Use
  Company Number: Z0002986A

PATIENT
  Sex: Male
  Weight: 92 kg

DRUGS (7)
  1. ASPIRIN [Concomitant]
     Indication: AORTIC THROMBOSIS
     Dosage: 100MG PER DAY
     Route: 048
     Dates: start: 20100121, end: 20100215
  2. RAMIPRIL [Concomitant]
     Indication: HYPERTENSION
     Dosage: 5MG TWICE PER DAY
     Route: 048
     Dates: start: 20040101
  3. HCT [Concomitant]
     Indication: HYPERTENSION
     Dosage: 25MG PER DAY
     Route: 048
     Dates: start: 20040101
  4. ASA [Concomitant]
     Dosage: 100MG PER DAY
  5. PAZOPANIB [Suspect]
     Indication: RENAL CELL CARCINOMA
     Dosage: 800MG PER DAY
     Route: 048
     Dates: start: 20091208
  6. MARCUMAR [Concomitant]
     Indication: AORTIC THROMBOSIS
     Dosage: 1APP PER DAY
     Route: 048
     Dates: start: 20100216
  7. AMLODIPINE [Concomitant]
     Indication: HYPERTENSION
     Dosage: 2.5MG PER DAY
     Route: 048
     Dates: start: 20100119

REACTIONS (1)
  - AORTIC THROMBOSIS [None]
